FAERS Safety Report 23218463 (Version 1)
Quarter: 2023Q4

REPORT INFORMATION
  Report Type: Spontaneous
  Country: US (occurrence: None)
  Receive Date: 20231122
  Receipt Date: 20231122
  Transmission Date: 20240110
  Serious: Yes (unspecified)
  Sender: FDA-Public Use
  Company Number: None

PATIENT
  Age: 47 Year
  Sex: Female
  Weight: 91.8 kg

DRUGS (23)
  1. VYEPTI [Suspect]
     Active Substance: EPTINEZUMAB-JJMR
     Indication: Migraine prophylaxis
     Dosage: OTHER QUANTITY : 1 1;?
     Route: 042
  2. OXYGEN [Concomitant]
  3. DEVICE [Concomitant]
     Active Substance: DEVICE
  4. nebulizer albuterol inhaler [Concomitant]
  5. ADVAIR HFA [Concomitant]
     Active Substance: FLUTICASONE PROPIONATE\SALMETEROL XINAFOATE
  6. SPIRIVA [Concomitant]
     Active Substance: TIOTROPIUM BROMIDE MONOHYDRATE
  7. DEPAKOTE [Concomitant]
     Active Substance: DIVALPROEX SODIUM
  8. BUPROPION [Concomitant]
     Active Substance: BUPROPION
  9. CLONAZEPAM [Concomitant]
  10. trazadone ulbrevely sometimes [Concomitant]
  11. oxycodone baclofen propanolol [Concomitant]
  12. loratadine symproic [Concomitant]
  13. pantroprazole [Concomitant]
  14. estradiol cream [Concomitant]
  15. fluconazole skin creams [Concomitant]
  16. shampoo [Concomitant]
  17. Guanifenisin [Concomitant]
  18. BENADRYL [Concomitant]
     Active Substance: DIPHENHYDRAMINE HYDROCHLORIDE
  19. Tylenol 8 hr [Concomitant]
  20. cough suppressant [Concomitant]
  21. nasal decongestant [Concomitant]
  22. miralax sometime aspirin [Concomitant]
  23. supplements/vitamins [Concomitant]

REACTIONS (1)
  - Anaphylactic shock [None]

NARRATIVE: CASE EVENT DATE: 20231115
